FAERS Safety Report 8985247 (Version 2)
Quarter: 2012Q4

REPORT INFORMATION
  Report Type: 
  Country: BR (occurrence: BR)
  Receive Date: 20121226
  Receipt Date: 20121227
  Transmission Date: 20130627
  Serious: Yes (Other)
  Sender: FDA-Public Use
  Company Number: BR-PFIZER INC-2012326320

PATIENT
  Age: 44 Year
  Sex: Male

DRUGS (2)
  1. OLMETEC HCT [Suspect]
     Indication: BLOOD PRESSURE
     Dosage: [olmesartan medoxomil 40mg/ hydrochlorothiazide 25mg] 1x/day
     Route: 048
     Dates: start: 20090502, end: 20121121
  2. NORVASC [Suspect]
     Indication: BLOOD PRESSURE
     Dosage: 5 mg, 1x/day
     Route: 048
     Dates: start: 20090502, end: 20121121

REACTIONS (2)
  - Gastric ulcer [Unknown]
  - Gastritis [Unknown]
